FAERS Safety Report 8923119 (Version 1)
Quarter: 2012Q4

REPORT INFORMATION
  Report Type: Spontaneous
  Country: US (occurrence: None)
  Receive Date: 20121115
  Receipt Date: 20121115
  Transmission Date: 20130627
  Serious: Yes (Other)
  Sender: FDA-Public Use
  Company Number: None

PATIENT
  Sex: Female
  Weight: 111.59 kg

DRUGS (1)
  1. PIOGLITAZONE [Suspect]
     Indication: TYPE II DIABETES MELLITUS
     Route: 048
     Dates: start: 201211

REACTIONS (7)
  - Product substitution issue [None]
  - Diarrhoea [None]
  - Oedema peripheral [None]
  - Asthenia [None]
  - Headache [None]
  - Visual impairment [None]
  - Palpitations [None]
